FAERS Safety Report 11723839 (Version 4)
Quarter: 2016Q2

REPORT INFORMATION
  Report Type: Report from Study
  Country: US (occurrence: US)
  Receive Date: 20151111
  Receipt Date: 20160505
  Transmission Date: 20160815
  Serious: Yes (Hospitalization, Other)
  Sender: FDA-Public Use
  Company Number: US-VERTEX PHARMACEUTICALS-2015-005002

PATIENT
  Age: 12 Year
  Sex: Female
  Weight: 54 kg

DRUGS (22)
  1. HYPERTONIC SALINE SOLUTION [Concomitant]
     Active Substance: SODIUM CHLORIDE
     Dosage: UNK, BID
  2. CREON [Concomitant]
     Active Substance: PANCRELIPASE AMYLASE\PANCRELIPASE LIPASE\PANCRELIPASE PROTEASE
     Dosage: 6 WITH MEALS, 3 WITH SNACKS
  3. VITAMIN D [Concomitant]
     Active Substance: CHOLECALCIFEROL
  4. CLARITIN [Concomitant]
     Active Substance: LORATADINE
     Dosage: 10 MG, QD
  5. PREDNISONE. [Concomitant]
     Active Substance: PREDNISONE
     Dosage: 15 MG, QD STEPPING DOWN TO 15-10 AT THE END OF WEEK
  6. PREDNISONE. [Concomitant]
     Active Substance: PREDNISONE
     Dosage: ALTERNATE 15MG WITH 20MG, QOD
  7. SOLU-CORTEF [Concomitant]
     Active Substance: HYDROCORTISONE SODIUM SUCCINATE
     Dosage: 2 ML AS NEEDED FOR EMERGENCY
     Route: 030
  8. PULMOZYME [Concomitant]
     Active Substance: DORNASE ALFA
     Dosage: 2.5 MG, QD
  9. ADEK [Concomitant]
  10. NOVOLOG [Concomitant]
     Active Substance: INSULIN ASPART
     Dosage: 150-200 0.5U DAY + 0.5 U PER ADDITIONAL 50, 1:15 G CARB
  11. ALBUTEROL. [Concomitant]
     Active Substance: ALBUTEROL
     Dosage: UNK, QD
  12. MIDAZOLAM [Concomitant]
     Active Substance: MIDAZOLAM\MIDAZOLAM HYDROCHLORIDE
     Dosage: 1 ML AS INSTRUCTED
     Route: 045
  13. DUONEB [Concomitant]
     Active Substance: ALBUTEROL SULFATE\IPRATROPIUM BROMIDE
     Dosage: UNK, PRN
  14. MVI [Concomitant]
     Active Substance: VITAMINS
  15. KEPPRA [Concomitant]
     Active Substance: LEVETIRACETAM
     Dosage: 500MG AM AND 750 MG QD
  16. ALENDRONATE [Concomitant]
     Active Substance: ALENDRONATE SODIUM
     Dosage: 1 DF, QD
  17. VITAMIN D3 [Concomitant]
     Active Substance: CHOLECALCIFEROL
     Dosage: TAKE 10 CAPS
     Route: 048
  18. EMLA [Concomitant]
     Active Substance: LIDOCAINE\PRILOCAINE
     Dosage: 30 G TUBE
     Route: 061
  19. ORKAMBI [Suspect]
     Active Substance: IVACAFTOR\LUMACAFTOR
     Indication: CYSTIC FIBROSIS
     Dosage: 2 DF, BID
     Route: 048
     Dates: start: 20151014, end: 20151101
  20. FOSAMAX [Concomitant]
     Active Substance: ALENDRONATE SODIUM
  21. DULERA [Concomitant]
     Active Substance: FORMOTEROL FUMARATE DIHYDRATE\MOMETASONE FUROATE
     Dosage: UNK, PRN
  22. MULTIVITAMIN [Concomitant]
     Active Substance: VITAMINS

REACTIONS (9)
  - Pain in extremity [Recovered/Resolved]
  - Pyrexia [Recovered/Resolved]
  - Myalgia [Unknown]
  - Diarrhoea [Unknown]
  - Nausea [Recovered/Resolved]
  - Dizziness [Recovered/Resolved]
  - Pain [Unknown]
  - Rash [Recovered/Resolved]
  - Infective pulmonary exacerbation of cystic fibrosis [Unknown]

NARRATIVE: CASE EVENT DATE: 20151016
